FAERS Safety Report 8348811-4 (Version None)
Quarter: 2012Q2

REPORT INFORMATION
  Report Type: 
  Country: None (occurrence: None)
  Receive Date: 20120508
  Receipt Date: 20120508
  Transmission Date: 20120825
  Serious: Yes (Hospitalization)
  Sender: FDA-Public Use
  Company Number: None

PATIENT
  Age: 65 Year
  Sex: Male
  Weight: 77.1115 kg

DRUGS (1)
  1. RANIBIZUMA (0.5MG OR 2.0 MG ) [Suspect]
     Dosage: INTRAVETRAL INJECTION
     Dates: start: 20120302

REACTIONS (1)
  - THALAMIC INFARCTION [None]
